FAERS Safety Report 25752727 (Version 2)
Quarter: 2025Q4

REPORT INFORMATION
  Report Type: Report from Study
  Country: IN (occurrence: IN)
  Receive Date: 20250902
  Receipt Date: 20251014
  Transmission Date: 20260118
  Serious: Yes (Other)
  Sender: PFIZER
  Company Number: IN-TAKEDA-2025TUS075532

PATIENT
  Age: 18 Year
  Sex: Male
  Weight: 61 kg

DRUGS (2)
  1. ADCETRIS [Suspect]
     Active Substance: BRENTUXIMAB VEDOTIN
     Indication: Anaplastic large cell lymphoma T- and null-cell types recurrent
     Dosage: UNK
     Route: 042
  2. ADCETRIS [Suspect]
     Active Substance: BRENTUXIMAB VEDOTIN
     Dosage: 50 MILLIGRAM
     Route: 042
     Dates: start: 20250820

REACTIONS (2)
  - Cytopenia [Unknown]
  - Neuropathy peripheral [Unknown]
